FAERS Safety Report 14248605 (Version 4)
Quarter: 2021Q2

REPORT INFORMATION
  Report Type: Spontaneous
  Country: US (occurrence: US)
  Receive Date: 20171204
  Receipt Date: 20210510
  Transmission Date: 20210716
  Serious: No
  Sender: FDA-Public Use
  Company Number: US-PFIZER INC-2017516934

PATIENT
  Age: 78 Year
  Sex: Female
  Weight: 61 kg

DRUGS (14)
  1. LORAZEPAM. [Concomitant]
     Active Substance: LORAZEPAM
     Dosage: 0.5 MG, AS NEEDED (SOLID)
     Route: 048
  2. LEVOTHYROXINE SODIUM. [Concomitant]
     Active Substance: LEVOTHYROXINE SODIUM
     Dosage: 50 UG, DAILY (SOLID)
     Route: 048
  3. OXYCODONE HYDROCHLORIDE. [Concomitant]
     Active Substance: OXYCODONE HYDROCHLORIDE
     Dosage: 5 MG, UNK (SOLID, AS DIRECTED)
     Route: 048
  4. CALCIUM + D [Concomitant]
     Active Substance: CALCIUM\VITAMIN D
     Dosage: UNK (SOLID)
     Route: 048
  5. DIAZEPAM. [Concomitant]
     Active Substance: DIAZEPAM
     Indication: CLAUSTROPHOBIA
     Dosage: 5 MG, 4X/DAY (SOLID, TAKE ONCE 30 MINS PRIOR TO FLYING)
     Route: 048
  6. ZOFRAN [Concomitant]
     Active Substance: ONDANSETRON HYDROCHLORIDE
     Indication: NAUSEA
     Dosage: 8 MG, AS NEEDED (SOLID, Q8H)
     Route: 048
  7. IBRANCE [Suspect]
     Active Substance: PALBOCICLIB
     Indication: BREAST CANCER STAGE IV
     Dosage: 125 MG, CYCLIC (DAYS 1?21 EVERY 28 DAYS) (TAKE WHOLE WITH WATER AND FOOD AT THE SAME TIME EACH DAY)
     Route: 048
     Dates: start: 201702
  8. IBRANCE [Suspect]
     Active Substance: PALBOCICLIB
     Dosage: 75 MG, UNK
     Route: 048
  9. OMEPRAZOLE. [Concomitant]
     Active Substance: OMEPRAZOLE
     Dosage: 20 MG, DAILY (SOLID, DELAYED RELEASE (ENTERIC COATED)
     Route: 048
  10. VENLAFAXINE HCL [Concomitant]
     Active Substance: VENLAFAXINE HYDROCHLORIDE
     Dosage: 75 MG, DAILY (SOLID SR, EXT RELEASE 24 HR)
     Route: 048
  11. CLARITINE [Concomitant]
     Active Substance: LORATADINE
     Dosage: 10 MG, DAILY (SOLID)
     Route: 048
  12. LETROZOLE. [Concomitant]
     Active Substance: LETROZOLE
     Dosage: 2.5 MG, UNK (SOLID)
     Route: 048
     Dates: start: 201702
  13. LISINOPRIL. [Concomitant]
     Active Substance: LISINOPRIL
     Dosage: 2.5 MG, DAILY (SOLID)
     Route: 048
  14. XGEVA [Concomitant]
     Active Substance: DENOSUMAB
     Indication: METASTASIS
     Dosage: UNK
     Dates: start: 20170209

REACTIONS (2)
  - Alopecia [Unknown]
  - Anaemia [Unknown]

NARRATIVE: CASE EVENT DATE: 2017
